FAERS Safety Report 20505383 (Version 3)
Quarter: 2022Q3

REPORT INFORMATION
  Report Type: Spontaneous
  Country: JP (occurrence: JP)
  Receive Date: 20220223
  Receipt Date: 20220907
  Transmission Date: 20221026
  Serious: Yes (Hospitalization, Other)
  Sender: FDA-Public Use
  Company Number: JP-MTPC-MTPC2020-0055687

PATIENT
  Age: 66 Year
  Sex: Female

DRUGS (224)
  1. REMICADE [Suspect]
     Active Substance: INFLIXIMAB
     Indication: Crohn^s disease
     Dosage: UNK
     Route: 041
     Dates: start: 200304
  2. REMICADE [Suspect]
     Active Substance: INFLIXIMAB
     Dosage: 300 MILLIGRAM, QD
     Route: 041
     Dates: start: 20200221, end: 20200306
  3. REMICADE [Suspect]
     Active Substance: INFLIXIMAB
     Dosage: 500 MILLIGRAM, QD
     Route: 041
     Dates: start: 20200403, end: 20200403
  4. STELARA [Suspect]
     Active Substance: USTEKINUMAB
     Indication: Crohn^s disease
     Dosage: 260 MILLIGRAM, Q8WEEKS
     Route: 058
     Dates: start: 20200618
  5. AZATHIOPRINE [Suspect]
     Active Substance: AZATHIOPRINE
     Indication: Product used for unknown indication
     Dosage: 50 MILLIGRAM, QD
     Dates: start: 20200306, end: 20200311
  6. AZATHIOPRINE [Suspect]
     Active Substance: AZATHIOPRINE
     Dosage: 100 MILLIGRAM, QD
     Route: 048
     Dates: start: 20200312, end: 20200312
  7. AZATHIOPRINE [Suspect]
     Active Substance: AZATHIOPRINE
     Dosage: 50 MILLIGRAM, QD
     Route: 048
     Dates: start: 20200313, end: 20200402
  8. AZATHIOPRINE [Suspect]
     Active Substance: AZATHIOPRINE
     Dosage: 50 MILLIGRAM, QD
     Route: 048
     Dates: start: 20200404, end: 20200527
  9. AZATHIOPRINE [Suspect]
     Active Substance: AZATHIOPRINE
     Dosage: 100 MILLIGRAM, QD
     Route: 048
     Dates: start: 20200528, end: 20200529
  10. AZATHIOPRINE [Suspect]
     Active Substance: AZATHIOPRINE
     Dosage: 50 MILLIGRAM, QD
     Route: 048
     Dates: start: 20200530, end: 20200624
  11. AZATHIOPRINE [Suspect]
     Active Substance: AZATHIOPRINE
     Dosage: 100 MILLIGRAM, QD
     Route: 048
     Dates: start: 20200625, end: 20200625
  12. AZATHIOPRINE [Suspect]
     Active Substance: AZATHIOPRINE
     Dosage: 50 MILLIGRAM, QD
     Route: 048
     Dates: start: 20200626, end: 20200730
  13. PREDNISOLONE [Suspect]
     Active Substance: PREDNISOLONE
     Indication: Product used for unknown indication
     Dosage: 20 MILLIGRAM, QD
     Route: 048
     Dates: end: 20200306
  14. PREDNISOLONE [Suspect]
     Active Substance: PREDNISOLONE
     Dosage: 5 MILLIGRAM, QD
     Route: 048
     Dates: start: 20200307, end: 20200313
  15. PREDNISOLONE [Suspect]
     Active Substance: PREDNISOLONE
     Dosage: 30 MILLIGRAM, QD
     Route: 048
     Dates: start: 20200414, end: 20200416
  16. PREDNISOLONE [Suspect]
     Active Substance: PREDNISOLONE
     Dosage: 80 MILLIGRAM, QD
     Route: 048
     Dates: start: 20200417, end: 20200417
  17. PREDNISOLONE [Suspect]
     Active Substance: PREDNISOLONE
     Dosage: 50 MILLIGRAM, QD
     Route: 048
     Dates: start: 20200418, end: 20200419
  18. PREDNISOLONE [Suspect]
     Active Substance: PREDNISOLONE
     Dosage: 20 MILLIGRAM, QD
     Route: 048
     Dates: start: 20200420, end: 20200424
  19. PREDNISOLONE [Suspect]
     Active Substance: PREDNISOLONE
     Dosage: 50 MILLIGRAM, QD
     Route: 048
     Dates: start: 20200428, end: 20200504
  20. PREDNISOLONE [Suspect]
     Active Substance: PREDNISOLONE
     Dosage: 20 MILLIGRAM, TID
     Route: 048
     Dates: start: 20200514, end: 20200520
  21. PREDNISOLONE [Suspect]
     Active Substance: PREDNISOLONE
     Dosage: 50 MILLIGRAM, QD
     Route: 048
     Dates: start: 20200521, end: 20200527
  22. PREDNISOLONE [Suspect]
     Active Substance: PREDNISOLONE
     Dosage: 40 MILLIGRAM, QD
     Route: 048
     Dates: start: 20200528, end: 20200610
  23. PREDNISOLONE [Suspect]
     Active Substance: PREDNISOLONE
     Dosage: 10 MILLIGRAM, TID
     Route: 048
     Dates: start: 20200611, end: 20200625
  24. PREDNISOLONE [Suspect]
     Active Substance: PREDNISOLONE
     Dosage: 20 MILLIGRAM, QD
     Route: 048
     Dates: start: 20200627, end: 20200703
  25. PREDNISOLONE [Suspect]
     Active Substance: PREDNISOLONE
     Dosage: 15 MILLIGRAM, QD
     Route: 048
     Dates: start: 20200704, end: 20200710
  26. PREDNISOLONE [Suspect]
     Active Substance: PREDNISOLONE
     Dosage: 10 MILLIGRAM, QD
     Route: 048
     Dates: start: 20200711, end: 20200717
  27. PREDNISOLONE [Suspect]
     Active Substance: PREDNISOLONE
     Dosage: 5 MILLIGRAM, QD
     Route: 048
     Dates: start: 20200718, end: 20200731
  28. PREDNISOLONE [Suspect]
     Active Substance: PREDNISOLONE
     Dosage: 3 MILLIGRAM, QD
     Route: 048
     Dates: start: 20200815, end: 20200821
  29. PREDNISOLONE [Suspect]
     Active Substance: PREDNISOLONE
     Dosage: 3 MILLIGRAM, QD
     Route: 048
     Dates: start: 20200829, end: 20200911
  30. PREDONINE [Suspect]
     Active Substance: PREDNISOLONE
     Indication: Product used for unknown indication
     Dosage: 40 MILLIGRAM, QD
     Route: 051
     Dates: start: 20200514, end: 20200514
  31. PREDONINE [Suspect]
     Active Substance: PREDNISOLONE
     Dosage: 140 MILLIGRAM, 1/WEEK
     Route: 051
     Dates: start: 20200627, end: 20200801
  32. PREDONINE [Suspect]
     Active Substance: PREDNISOLONE
     Dosage: 280 MILLIGRAM, QD
     Route: 051
     Dates: start: 20200808, end: 20200808
  33. PREDONINE [Suspect]
     Active Substance: PREDNISOLONE
     Dosage: 140 MILLIGRAM, 1/WEEK
     Route: 051
     Dates: start: 20200828, end: 20200828
  34. PREDONINE [Suspect]
     Active Substance: PREDNISOLONE
     Dosage: 280 MILLIGRAM, QD
     Route: 051
     Dates: start: 20200903, end: 20200903
  35. PREDONINE [Suspect]
     Active Substance: PREDNISOLONE
     Dosage: 140 MILLIGRAM, 1/WEEK
     Route: 051
     Dates: start: 20200911, end: 20200911
  36. PREDNISOLONE SODIUM SUCCINATE [Suspect]
     Active Substance: PREDNISOLONE SODIUM SUCCINATE
     Indication: Product used for unknown indication
     Route: 051
  37. PENTASA [Concomitant]
     Active Substance: MESALAMINE
     Indication: Crohn^s disease
     Dosage: 2000 MILLIGRAM, BID
     Route: 048
     Dates: start: 20200130
  38. PENTASA [Concomitant]
     Active Substance: MESALAMINE
     Dosage: 3000 MILLIGRAM, QD
     Route: 048
     Dates: end: 20200311
  39. PENTASA [Concomitant]
     Active Substance: MESALAMINE
     Dosage: 6000 MILLIGRAM, QD
     Route: 048
     Dates: start: 20200312, end: 20200312
  40. PENTASA [Concomitant]
     Active Substance: MESALAMINE
     Dosage: 3000 MILLIGRAM, QD
     Route: 048
     Dates: start: 20200313, end: 20200402
  41. PENTASA [Concomitant]
     Active Substance: MESALAMINE
     Dosage: 3000 MILLIGRAM, QD
     Route: 048
     Dates: start: 20200404, end: 20200527
  42. PENTASA [Concomitant]
     Active Substance: MESALAMINE
     Dosage: 6000 MILLIGRAM, QD
     Route: 048
     Dates: start: 20200528, end: 20200529
  43. PENTASA [Concomitant]
     Active Substance: MESALAMINE
     Dosage: 3000 MILLIGRAM, QD
     Route: 048
     Dates: start: 20200530, end: 20200625
  44. PENTASA [Concomitant]
     Active Substance: MESALAMINE
     Dosage: 3000 MILLIGRAM, QD
     Route: 048
     Dates: start: 20200627, end: 20200730
  45. PENTASA [Concomitant]
     Active Substance: MESALAMINE
     Dosage: 3000 MILLIGRAM, QD
     Route: 048
     Dates: start: 20200828, end: 20200902
  46. PENTASA [Concomitant]
     Active Substance: MESALAMINE
     Dosage: 6000 MILLIGRAM, QD
     Route: 048
     Dates: start: 20200903, end: 20200903
  47. PENTASA [Concomitant]
     Active Substance: MESALAMINE
     Dosage: 3000 MILLIGRAM, QD
     Route: 048
     Dates: start: 20200904, end: 20200910
  48. PENTASA [Concomitant]
     Active Substance: MESALAMINE
     Dosage: 6000 MILLIGRAM, QD
     Route: 048
     Dates: start: 20200911
  49. PENTASA [Concomitant]
     Active Substance: MESALAMINE
     Dosage: 1 GRAM, QD
     Route: 054
     Dates: start: 20200319, end: 20200319
  50. PENTASA [Concomitant]
     Active Substance: MESALAMINE
     Dosage: 1 GRAM, QD
     Route: 054
     Dates: start: 20200404, end: 20200404
  51. PENTASA [Concomitant]
     Active Substance: MESALAMINE
     Dosage: 7 GRAM, QD
     Route: 054
     Dates: start: 20200604, end: 20200604
  52. PENTASA [Concomitant]
     Active Substance: MESALAMINE
     Dosage: 15 GRAM, QD
     Route: 054
     Dates: start: 20200611, end: 20200611
  53. PENTASA [Concomitant]
     Active Substance: MESALAMINE
     Dosage: 14 GRAM, QD
     Route: 054
     Dates: start: 20200618, end: 20200618
  54. PENTASA [Concomitant]
     Active Substance: MESALAMINE
     Dosage: 7 GRAM, QD
     Route: 054
     Dates: start: 20200627, end: 20200627
  55. PENTASA [Concomitant]
     Active Substance: MESALAMINE
     Dosage: 7 GRAM, QD
     Route: 054
     Dates: start: 20200718, end: 20200718
  56. PENTASA [Concomitant]
     Active Substance: MESALAMINE
     Dosage: 1 GRAM, 1/WEEK
     Route: 054
     Dates: start: 20200725, end: 20200808
  57. PENTASA [Concomitant]
     Active Substance: MESALAMINE
     Dosage: 1 GRAM, 1/WEEK
     Route: 054
     Dates: start: 20200822
  58. PENTASA [Concomitant]
     Active Substance: MESALAMINE
     Dosage: 1 GRAM, 1/WEEK
     Route: 054
     Dates: start: 20200627, end: 20200725
  59. PENTASA [Concomitant]
     Active Substance: MESALAMINE
     Dosage: 1 GRAM, QD
     Route: 054
     Dates: start: 20200731, end: 20200801
  60. PENTASA [Concomitant]
     Active Substance: MESALAMINE
     Dosage: 1 GRAM, QD
     Route: 054
     Dates: start: 20200808, end: 20200808
  61. PENTASA [Concomitant]
     Active Substance: MESALAMINE
     Dosage: 1 GRAM, 1/WEEK
     Route: 054
     Dates: start: 20200822
  62. SULFAMETHOXAZOLE\TRIMETHOPRIM [Concomitant]
     Active Substance: SULFAMETHOXAZOLE\TRIMETHOPRIM
     Indication: Antifungal prophylaxis
     Dosage: UNK
     Route: 048
     Dates: start: 20200130
  63. SULFAMETHOXAZOLE\TRIMETHOPRIM [Concomitant]
     Active Substance: SULFAMETHOXAZOLE\TRIMETHOPRIM
     Dosage: 1 DOSAGE FORM, QD
     Route: 048
     Dates: end: 20200311
  64. SULFAMETHOXAZOLE\TRIMETHOPRIM [Concomitant]
     Active Substance: SULFAMETHOXAZOLE\TRIMETHOPRIM
     Dosage: 2 DOSAGE FORM, QD
     Route: 048
     Dates: start: 20200312, end: 20200312
  65. SULFAMETHOXAZOLE\TRIMETHOPRIM [Concomitant]
     Active Substance: SULFAMETHOXAZOLE\TRIMETHOPRIM
     Dosage: 1 DOSAGE FORM, QD
     Route: 048
     Dates: start: 20200313, end: 20200402
  66. SULFAMETHOXAZOLE\TRIMETHOPRIM [Concomitant]
     Active Substance: SULFAMETHOXAZOLE\TRIMETHOPRIM
     Dosage: 1 DOSAGE FORM, QD
     Route: 048
     Dates: start: 20200519, end: 20200527
  67. SULFAMETHOXAZOLE\TRIMETHOPRIM [Concomitant]
     Active Substance: SULFAMETHOXAZOLE\TRIMETHOPRIM
     Dosage: 2 DOSAGE FORM, QD
     Route: 048
     Dates: start: 20200528, end: 20200528
  68. SULFAMETHOXAZOLE\TRIMETHOPRIM [Concomitant]
     Active Substance: SULFAMETHOXAZOLE\TRIMETHOPRIM
     Dosage: 1 DOSAGE FORM, QD
     Route: 048
     Dates: start: 20200529, end: 20200625
  69. SULFAMETHOXAZOLE\TRIMETHOPRIM [Concomitant]
     Active Substance: SULFAMETHOXAZOLE\TRIMETHOPRIM
     Dosage: 1 DOSAGE FORM, QD
     Route: 048
     Dates: start: 20200627, end: 20200730
  70. ISCOTIN [Concomitant]
     Active Substance: ISONIAZID
     Indication: Antibiotic prophylaxis
     Dosage: 300 MILLIGRAM, QD
     Route: 048
     Dates: start: 20200130, end: 20200402
  71. ISCOTIN [Concomitant]
     Active Substance: ISONIAZID
     Dosage: 300 MILLIGRAM, QD
     Route: 048
     Dates: start: 20200404, end: 20200527
  72. ISCOTIN [Concomitant]
     Active Substance: ISONIAZID
     Dosage: 600 MILLIGRAM, QD
     Route: 048
     Dates: start: 20200528, end: 20200529
  73. ISCOTIN [Concomitant]
     Active Substance: ISONIAZID
     Dosage: 300 MILLIGRAM, QD
     Route: 048
     Dates: start: 20200530, end: 20200625
  74. ISCOTIN [Concomitant]
     Active Substance: ISONIAZID
     Dosage: 300 MILLIGRAM, QD
     Route: 048
     Dates: start: 20200627, end: 20200730
  75. Incremin [Concomitant]
     Indication: Anaemia
     Dosage: 15 MILLILITER, QD
     Route: 048
     Dates: start: 20200130
  76. Incremin [Concomitant]
     Dosage: 15 MILLILITER, QD
     Route: 048
     Dates: start: 20200306, end: 20200311
  77. Incremin [Concomitant]
     Dosage: 30 MILLILITER, QD
     Route: 048
     Dates: start: 20200312, end: 20200312
  78. Incremin [Concomitant]
     Dosage: 15 MILLILITER, QD
     Route: 048
     Dates: start: 20200313, end: 20200402
  79. Incremin [Concomitant]
     Dosage: 15 MILLILITER, QD
     Route: 048
     Dates: start: 20200404, end: 20200529
  80. BIO-THREE [Concomitant]
     Active Substance: HERBALS
     Indication: Gastrointestinal disorder
     Dosage: 6 DOSAGE FORM, QD
     Route: 048
     Dates: start: 20200130, end: 20200311
  81. BIO-THREE [Concomitant]
     Active Substance: HERBALS
     Dosage: 12 DOSAGE FORM, QD
     Route: 048
     Dates: start: 20200312, end: 20200312
  82. BIO-THREE [Concomitant]
     Active Substance: HERBALS
     Dosage: 6 DOSAGE FORM, QD
     Route: 048
     Dates: start: 20200313, end: 20200527
  83. BIO-THREE [Concomitant]
     Active Substance: HERBALS
     Dosage: 12 DOSAGE FORM, QD
     Route: 048
     Dates: start: 20200528, end: 20200529
  84. BIO-THREE [Concomitant]
     Active Substance: HERBALS
     Dosage: 6 DOSAGE FORM, QD
     Route: 048
     Dates: start: 20200530, end: 20200625
  85. BIO-THREE [Concomitant]
     Active Substance: HERBALS
     Dosage: 6 DOSAGE FORM, QD
     Route: 048
     Dates: start: 20200627, end: 20200827
  86. BIO-THREE [Concomitant]
     Active Substance: HERBALS
     Dosage: 12 DOSAGE FORM, QD
     Route: 048
     Dates: start: 20200828, end: 20200828
  87. BIO-THREE [Concomitant]
     Active Substance: HERBALS
     Dosage: 6 DOSAGE FORM, QD
     Route: 048
     Dates: start: 20200829, end: 20200902
  88. BIO-THREE [Concomitant]
     Active Substance: HERBALS
     Dosage: 12 DOSAGE FORM, QD
     Route: 048
     Dates: start: 20200903, end: 20200903
  89. BIO-THREE [Concomitant]
     Active Substance: HERBALS
     Dosage: 6 DOSAGE FORM, QD
     Route: 048
     Dates: start: 20200904, end: 20200910
  90. BIO-THREE [Concomitant]
     Active Substance: HERBALS
     Dosage: 12 DOSAGE FORM, QD
     Route: 048
     Dates: start: 20200911
  91. ALENDRONATE [Concomitant]
     Active Substance: ALENDRONATE SODIUM
     Dosage: 35 MILLIGRAM, QD
     Route: 048
     Dates: start: 20200303, end: 20200306
  92. ALENDRONATE [Concomitant]
     Active Substance: ALENDRONATE SODIUM
     Dosage: 35 MILLIGRAM, QD
     Route: 048
     Dates: start: 20200414, end: 20200414
  93. ALENDRONATE [Concomitant]
     Active Substance: ALENDRONATE SODIUM
     Dosage: 35 MILLIGRAM, QD
     Route: 048
     Dates: start: 20200417, end: 20200418
  94. ALENDRONATE [Concomitant]
     Active Substance: ALENDRONATE SODIUM
     Dosage: 35 MILLIGRAM, QD
     Route: 048
     Dates: start: 20200428, end: 20200430
  95. ALENDRONATE [Concomitant]
     Active Substance: ALENDRONATE SODIUM
     Dosage: 35 MILLIGRAM, QD
     Route: 048
     Dates: start: 20200528, end: 20200529
  96. ALENDRONATE [Concomitant]
     Active Substance: ALENDRONATE SODIUM
     Dosage: 35 MILLIGRAM, QD
     Route: 048
     Dates: start: 20200611, end: 20200612
  97. ALENDRONATE [Concomitant]
     Active Substance: ALENDRONATE SODIUM
     Dosage: 35 MILLIGRAM, 1/WEEK
     Route: 048
     Dates: start: 20200627, end: 20200725
  98. ALENDRONATE [Concomitant]
     Active Substance: ALENDRONATE SODIUM
     Dosage: 35 MILLIGRAM, 1/WEEK
     Route: 048
     Dates: start: 20200828, end: 20200828
  99. ALENDRONATE [Concomitant]
     Active Substance: ALENDRONATE SODIUM
     Dosage: 35 MILLIGRAM, QD
     Route: 048
     Dates: start: 20200903, end: 20200904
  100. ALENDRONATE [Concomitant]
     Active Substance: ALENDRONATE SODIUM
     Dosage: 35 MILLIGRAM, QD
     Route: 048
     Dates: start: 20200911, end: 20200911
  101. LORATADINE [Concomitant]
     Active Substance: LORATADINE
     Dosage: 10 MILLIGRAM, QD
     Route: 048
     Dates: start: 20200303, end: 20200305
  102. LORATADINE [Concomitant]
     Active Substance: LORATADINE
     Dosage: 10 MILLIGRAM, QD
     Route: 048
     Dates: start: 20200414, end: 20200416
  103. LORATADINE [Concomitant]
     Active Substance: LORATADINE
     Dosage: 20 MILLIGRAM, QD
     Route: 048
     Dates: start: 20200417, end: 20200417
  104. LORATADINE [Concomitant]
     Active Substance: LORATADINE
     Dosage: 10 MILLIGRAM, QD
     Route: 048
     Dates: start: 20200418, end: 20200428
  105. SODIUM CHLORIDE [Concomitant]
     Active Substance: SODIUM CHLORIDE
     Dosage: 2000 MILLILITER, QD
     Route: 041
     Dates: start: 20200305, end: 20200305
  106. SODIUM CHLORIDE [Concomitant]
     Active Substance: SODIUM CHLORIDE
     Dosage: 350 MILLILITER, QD
     Route: 041
     Dates: start: 20200306, end: 20200306
  107. SODIUM CHLORIDE [Concomitant]
     Active Substance: SODIUM CHLORIDE
     Dosage: 2000 MILLILITER, QD
     Route: 041
     Dates: start: 20200312, end: 20200312
  108. SODIUM CHLORIDE [Concomitant]
     Active Substance: SODIUM CHLORIDE
     Dosage: 2000 MILLILITER, QD
     Route: 041
     Dates: start: 20200319, end: 20200319
  109. SODIUM CHLORIDE [Concomitant]
     Active Substance: SODIUM CHLORIDE
     Dosage: 350 MILLILITER, QD
     Route: 041
     Dates: start: 20200403, end: 20200403
  110. SODIUM CHLORIDE [Concomitant]
     Active Substance: SODIUM CHLORIDE
     Dosage: 200 MILLILITER, QD
     Route: 041
     Dates: start: 20200414, end: 20200414
  111. SODIUM CHLORIDE [Concomitant]
     Active Substance: SODIUM CHLORIDE
     Dosage: 200 MILLILITER, QD
     Route: 041
     Dates: start: 20200428, end: 20200428
  112. SODIUM CHLORIDE [Concomitant]
     Active Substance: SODIUM CHLORIDE
     Dosage: 2000 MILLILITER, QD
     Route: 041
     Dates: start: 20200507, end: 20200507
  113. SODIUM CHLORIDE [Concomitant]
     Active Substance: SODIUM CHLORIDE
     Dosage: 2000 MILLILITER, QD
     Route: 041
     Dates: start: 20200512, end: 20200512
  114. SODIUM CHLORIDE [Concomitant]
     Active Substance: SODIUM CHLORIDE
     Dosage: 2100 MILLILITER, QD
     Route: 041
     Dates: start: 20200514, end: 20200514
  115. SODIUM CHLORIDE [Concomitant]
     Active Substance: SODIUM CHLORIDE
     Dosage: 2000 MILLILITER, 2/WEEK
     Route: 041
     Dates: start: 20200519, end: 20200521
  116. SODIUM CHLORIDE [Concomitant]
     Active Substance: SODIUM CHLORIDE
     Dosage: 200 MILLILITER, QD
     Route: 041
     Dates: start: 20200526, end: 20200526
  117. SODIUM CHLORIDE [Concomitant]
     Active Substance: SODIUM CHLORIDE
     Dosage: 2000 MILLILITER, 1/WEEK
     Route: 041
     Dates: start: 20200528, end: 20200611
  118. SODIUM CHLORIDE [Concomitant]
     Active Substance: SODIUM CHLORIDE
     Dosage: 2350 MILLILITER, QD
     Route: 041
     Dates: start: 20200618, end: 20200618
  119. SODIUM CHLORIDE [Concomitant]
     Active Substance: SODIUM CHLORIDE
     Dosage: 2000 MILLILITER, QD
     Route: 041
     Dates: start: 20200626, end: 20200626
  120. DEXTROSE [Concomitant]
     Active Substance: DEXTROSE
     Dosage: 20 MILLILITER, 1/WEEK
     Route: 051
     Dates: start: 20200305, end: 20200319
  121. DEXTROSE [Concomitant]
     Active Substance: DEXTROSE
     Dosage: 20 MILLILITER, QD
     Route: 051
     Dates: start: 20200507, end: 20200507
  122. DEXTROSE [Concomitant]
     Active Substance: DEXTROSE
     Dosage: 20 MILLILITER, 2/WEEK
     Route: 051
     Dates: start: 20200512, end: 20200521
  123. DEXTROSE [Concomitant]
     Active Substance: DEXTROSE
     Dosage: 20 MILLILITER, 1/WEEK
     Route: 051
     Dates: start: 20200528, end: 20200618
  124. DEXTROSE [Concomitant]
     Active Substance: DEXTROSE
     Dosage: 40 MILLILITER, QD
     Route: 051
     Dates: start: 20200626, end: 20200626
  125. DEXTROSE [Concomitant]
     Active Substance: DEXTROSE
     Dosage: 20 MILLILITER, QOD
     Route: 051
     Dates: start: 20200718, end: 20200724
  126. DEXTROSE [Concomitant]
     Active Substance: DEXTROSE
     Dosage: 20 MILLILITER, QOD
     Route: 051
     Dates: start: 20200727, end: 20200727
  127. HEPARIN SODIUM [Concomitant]
     Active Substance: HEPARIN SODIUM
     Dosage: 2 DOSAGE FORM, 1/WEEK
     Route: 051
     Dates: start: 20200305, end: 20200319
  128. HEPARIN SODIUM [Concomitant]
     Active Substance: HEPARIN SODIUM
     Dosage: 2 DOSAGE FORM, QD
     Route: 051
     Dates: start: 20200507, end: 20200507
  129. HEPARIN SODIUM [Concomitant]
     Active Substance: HEPARIN SODIUM
     Dosage: 2 DOSAGE FORM, 2/WEEK
     Route: 051
     Dates: start: 20200512, end: 20200521
  130. HEPARIN SODIUM [Concomitant]
     Active Substance: HEPARIN SODIUM
     Dosage: 2 DOSAGE FORM, 1/WEEK
     Route: 051
     Dates: start: 20200528, end: 20200626
  131. HEPARIN SODIUM [Concomitant]
     Active Substance: HEPARIN SODIUM
     Dosage: 2 DOSAGE FORM, QD
     Route: 051
     Dates: start: 20200704, end: 20200704
  132. NAFAMOSTAT [Concomitant]
     Active Substance: NAFAMOSTAT
     Dosage: 100 MILLIGRAM, 1/WEEK
     Route: 051
     Dates: start: 20200305, end: 20200319
  133. NAFAMOSTAT [Concomitant]
     Active Substance: NAFAMOSTAT
     Dosage: 100 MILLIGRAM, QD
     Route: 051
     Dates: start: 20200507, end: 20200507
  134. NAFAMOSTAT [Concomitant]
     Active Substance: NAFAMOSTAT
     Dosage: 100 MILLIGRAM, 2/WEEK
     Route: 051
     Dates: start: 20200512, end: 20200521
  135. NAFAMOSTAT [Concomitant]
     Active Substance: NAFAMOSTAT
     Dosage: 60 MILLIGRAM, 1/WEEK
     Route: 051
     Dates: start: 20200528, end: 20200618
  136. NAFAMOSTAT [Concomitant]
     Active Substance: NAFAMOSTAT
     Dosage: 120 MILLIGRAM, 1/WEEK
     Route: 051
     Dates: start: 20200626, end: 20200626
  137. SOLU-CORTEF [Concomitant]
     Active Substance: HYDROCORTISONE SODIUM SUCCINATE
     Indication: Prophylaxis
     Dosage: 100 MILLIGRAM, QD
     Route: 041
     Dates: start: 20200306, end: 20200306
  138. DEXTROSE\SODIUM CHLORIDE\SODIUM LACTATE [Concomitant]
     Active Substance: DEXTROSE\SODIUM CHLORIDE\SODIUM LACTATE
     Dosage: 500 MILLILITER, QD
     Route: 041
     Dates: start: 20200403, end: 20200403
  139. AMINO ACIDS\CARBOHYDRATES\MINERALS\SOYBEAN OIL\VITAMINS [Concomitant]
     Active Substance: AMINO ACIDS\CARBOHYDRATES\MINERALS\SOYBEAN OIL\VITAMINS
     Dosage: 160 GRAM, QD
     Route: 048
     Dates: start: 20200414, end: 20200420
  140. AMINO ACIDS\CARBOHYDRATES\MINERALS\SOYBEAN OIL\VITAMINS [Concomitant]
     Active Substance: AMINO ACIDS\CARBOHYDRATES\MINERALS\SOYBEAN OIL\VITAMINS
     Dosage: 240 GRAM, QD
     Route: 048
     Dates: start: 20200519, end: 20200527
  141. AMINO ACIDS\CARBOHYDRATES\MINERALS\SOYBEAN OIL\VITAMINS [Concomitant]
     Active Substance: AMINO ACIDS\CARBOHYDRATES\MINERALS\SOYBEAN OIL\VITAMINS
     Dosage: 480 GRAM, QD
     Route: 048
     Dates: start: 20200528, end: 20200528
  142. AMINO ACIDS\CARBOHYDRATES\MINERALS\SOYBEAN OIL\VITAMINS [Concomitant]
     Active Substance: AMINO ACIDS\CARBOHYDRATES\MINERALS\SOYBEAN OIL\VITAMINS
     Dosage: 240 GRAM, QD
     Route: 048
     Dates: start: 20200529, end: 20200625
  143. AMINO ACIDS\CARBOHYDRATES\MINERALS\SOYBEAN OIL\VITAMINS [Concomitant]
     Active Substance: AMINO ACIDS\CARBOHYDRATES\MINERALS\SOYBEAN OIL\VITAMINS
     Dosage: 160 GRAM, QD
     Route: 048
     Dates: start: 20200720, end: 20200827
  144. AMINO ACIDS\CARBOHYDRATES\MINERALS\SOYBEAN OIL\VITAMINS [Concomitant]
     Active Substance: AMINO ACIDS\CARBOHYDRATES\MINERALS\SOYBEAN OIL\VITAMINS
     Dosage: 320 GRAM, QD
     Route: 048
     Dates: start: 20200828, end: 20200828
  145. AMINO ACIDS\CARBOHYDRATES\MINERALS\SOYBEAN OIL\VITAMINS [Concomitant]
     Active Substance: AMINO ACIDS\CARBOHYDRATES\MINERALS\SOYBEAN OIL\VITAMINS
     Dosage: 160 GRAM, QD
     Route: 048
     Dates: start: 20200829, end: 20200902
  146. AMINO ACIDS\CARBOHYDRATES\MINERALS\SOYBEAN OIL\VITAMINS [Concomitant]
     Active Substance: AMINO ACIDS\CARBOHYDRATES\MINERALS\SOYBEAN OIL\VITAMINS
     Dosage: 320 GRAM, QD
     Route: 048
     Dates: start: 20200903, end: 20200903
  147. AMINO ACIDS\CARBOHYDRATES\MINERALS\SOYBEAN OIL\VITAMINS [Concomitant]
     Active Substance: AMINO ACIDS\CARBOHYDRATES\MINERALS\SOYBEAN OIL\VITAMINS
     Dosage: 160 GRAM, QD
     Route: 048
     Dates: start: 20200904, end: 20200910
  148. AMINO ACIDS\CARBOHYDRATES\MINERALS\SOYBEAN OIL\VITAMINS [Concomitant]
     Active Substance: AMINO ACIDS\CARBOHYDRATES\MINERALS\SOYBEAN OIL\VITAMINS
     Dosage: 320 GRAM, QD
     Route: 048
     Dates: start: 20200911
  149. WATER FOR INJECTION [Concomitant]
     Active Substance: WATER
     Dosage: 20 MILLILITER, QD
     Route: 051
     Dates: start: 20200414, end: 20200414
  150. WATER FOR INJECTION [Concomitant]
     Active Substance: WATER
     Dosage: 20 MILLILITER, QD
     Route: 051
     Dates: start: 20200428, end: 20200428
  151. WATER FOR INJECTION [Concomitant]
     Active Substance: WATER
     Dosage: 20 MILLILITER, QD
     Route: 051
     Dates: start: 20200526, end: 20200526
  152. ENTYVIO [Concomitant]
     Active Substance: VEDOLIZUMAB
     Dosage: 300 MILLIGRAM, QD
     Route: 041
     Dates: start: 20200414, end: 20200414
  153. ENTYVIO [Concomitant]
     Active Substance: VEDOLIZUMAB
     Dosage: 300 MILLIGRAM, QD
     Route: 041
     Dates: start: 20200428, end: 20200428
  154. ENTYVIO [Concomitant]
     Active Substance: VEDOLIZUMAB
     Dosage: 300 MILLIGRAM, QD
     Route: 041
     Dates: start: 20200526, end: 20200526
  155. PROCTOSEDYL [CINCHOCAINE HYDROCHLORIDE;ESCULOSIDE;FRAMYCETIN SULFATE;H [Concomitant]
     Dosage: 90 GRAM, QD
     Route: 061
     Dates: start: 20200611, end: 20200611
  156. PROCTOSEDYL [CINCHOCAINE HYDROCHLORIDE;ESCULOSIDE;FRAMYCETIN SULFATE;H [Concomitant]
     Dosage: 28 GRAM, QD
     Route: 061
     Dates: start: 20200815, end: 20200815
  157. BUDESONIDE [Concomitant]
     Active Substance: BUDESONIDE
     Dosage: 4 MILLIGRAM, QD
     Route: 054
     Dates: start: 20200618, end: 20200618
  158. SOLULACT S [Concomitant]
     Dosage: 500 MILLILITER, QD
     Route: 041
     Dates: start: 20200618, end: 20200618
  159. VOLVIX [Concomitant]
     Dosage: 1 DOSAGE FORM, QD
     Route: 051
     Dates: start: 20200619, end: 20200804
  160. NEOPAREN [Concomitant]
     Active Substance: AMINO ACIDS\DEXTROSE\ELECTROLYTES NOS\VITAMINS
     Dosage: 1 DOSAGE FORM, QD
     Route: 041
     Dates: start: 20200619, end: 20200619
  161. NEOPAREN [Concomitant]
     Active Substance: AMINO ACIDS\DEXTROSE\ELECTROLYTES NOS\VITAMINS
     Dosage: 2 DOSAGE FORM, QD
     Route: 041
     Dates: start: 20200620, end: 20200620
  162. NEOPAREN [Concomitant]
     Active Substance: AMINO ACIDS\DEXTROSE\ELECTROLYTES NOS\VITAMINS
     Dosage: 1 DOSAGE FORM, QD
     Route: 041
     Dates: start: 20200804, end: 20200804
  163. NEOPAREN [Concomitant]
     Active Substance: AMINO ACIDS\DEXTROSE\ELECTROLYTES NOS\VITAMINS
     Dosage: 2 DOSAGE FORM, QD
     Route: 041
     Dates: start: 20200621, end: 20200730
  164. NEOPAREN [Concomitant]
     Active Substance: AMINO ACIDS\DEXTROSE\ELECTROLYTES NOS\VITAMINS
     Dosage: 1 DOSAGE FORM, QD
     Route: 041
     Dates: start: 20200731, end: 20200803
  165. AMINO ACIDS\DEXTROSE\ELECTROLYTES NOS\VITAMINS [Concomitant]
     Active Substance: AMINO ACIDS\DEXTROSE\ELECTROLYTES NOS\VITAMINS
     Dosage: 1 DOSAGE FORM, QD
     Route: 041
     Dates: start: 20200619, end: 20200619
  166. AMINO ACIDS\DEXTROSE\ELECTROLYTES NOS\VITAMINS [Concomitant]
     Active Substance: AMINO ACIDS\DEXTROSE\ELECTROLYTES NOS\VITAMINS
     Dosage: 1 DOSAGE FORM, QD
     Route: 041
     Dates: start: 20200805, end: 20200806
  167. SOYBEAN OIL [Concomitant]
     Active Substance: SOYBEAN OIL
     Dosage: 1 DOSAGE FORM, QOD
     Route: 041
     Dates: start: 20200623, end: 20200727
  168. KETOPROFEN [Concomitant]
     Active Substance: KETOPROFEN
     Dosage: 140 MILLIGRAM, QD
     Route: 061
     Dates: start: 20200624, end: 20200624
  169. Fesin [Concomitant]
     Dosage: 40 MILLIGRAM, QOD
     Route: 042
     Dates: start: 20200718, end: 20200724
  170. Fesin [Concomitant]
     Dosage: 40 MILLIGRAM, QD
     Route: 042
     Dates: start: 20200727, end: 20200727
  171. CALONAL [Concomitant]
     Active Substance: ACETAMINOPHEN
     Dosage: 40 DOSAGE FORM, QD
     Route: 048
     Dates: start: 20200728, end: 20200728
  172. CALONAL [Concomitant]
     Active Substance: ACETAMINOPHEN
     Dosage: 40 DOSAGE FORM, QD
     Route: 048
     Dates: start: 20200821, end: 20200821
  173. NIFEDIPINE [Concomitant]
     Active Substance: NIFEDIPINE
     Dosage: 20 MILLIGRAM, QD
     Route: 048
     Dates: start: 20200730, end: 20200821
  174. NIFEDIPINE [Concomitant]
     Active Substance: NIFEDIPINE
     Dosage: 10 MILLIGRAM, QD
     Route: 048
     Dates: start: 20200822, end: 20200827
  175. NIFEDIPINE [Concomitant]
     Active Substance: NIFEDIPINE
     Dosage: 20 MILLIGRAM, QD
     Route: 048
     Dates: start: 20200828, end: 20200828
  176. NIFEDIPINE [Concomitant]
     Active Substance: NIFEDIPINE
     Dosage: 10 MILLIGRAM, QD
     Route: 048
     Dates: start: 20200829, end: 20200902
  177. NIFEDIPINE [Concomitant]
     Active Substance: NIFEDIPINE
     Dosage: 20 MILLIGRAM, QD
     Route: 048
     Dates: start: 20200903, end: 20200903
  178. NIFEDIPINE [Concomitant]
     Active Substance: NIFEDIPINE
     Dosage: 10 MILLIGRAM, QD
     Route: 048
     Dates: start: 20200904, end: 20200910
  179. NIFEDIPINE [Concomitant]
     Active Substance: NIFEDIPINE
     Dosage: 20 MILLIGRAM, QD
     Route: 048
     Dates: start: 20200911
  180. GLYCERIN [Concomitant]
     Active Substance: GLYCERIN
     Dosage: 1 DOSAGE FORM, QD
     Route: 054
     Dates: start: 20200730, end: 20200730
  181. LASIX [Concomitant]
     Active Substance: FUROSEMIDE
     Dosage: 20 MILLIGRAM, QD
     Route: 048
     Dates: start: 20200806, end: 20200817
  182. ALINAMIN F [Concomitant]
     Active Substance: FURSULTIAMINE HYDROCHLORIDE
     Dosage: 75 MILLIGRAM, QD
     Route: 048
     Dates: start: 20200807, end: 20200820
  183. ALINAMIN F [Concomitant]
     Active Substance: FURSULTIAMINE HYDROCHLORIDE
     Dosage: 75 MILLIGRAM, QD
     Route: 048
     Dates: start: 20200822, end: 20200827
  184. ALINAMIN F [Concomitant]
     Active Substance: FURSULTIAMINE HYDROCHLORIDE
     Dosage: 150 MILLIGRAM, QD
     Route: 048
     Dates: start: 20200828, end: 20200828
  185. ALINAMIN F [Concomitant]
     Active Substance: FURSULTIAMINE HYDROCHLORIDE
     Dosage: 75 MILLIGRAM, QD
     Route: 048
     Dates: start: 20200829, end: 20200902
  186. ALINAMIN F [Concomitant]
     Active Substance: FURSULTIAMINE HYDROCHLORIDE
     Dosage: 150 MILLIGRAM, QD
     Route: 048
     Dates: start: 20200903, end: 20200903
  187. ALINAMIN F [Concomitant]
     Active Substance: FURSULTIAMINE HYDROCHLORIDE
     Dosage: 75 MILLIGRAM, QD
     Route: 048
     Dates: start: 20200904, end: 20200910
  188. ALINAMIN F [Concomitant]
     Active Substance: FURSULTIAMINE HYDROCHLORIDE
     Dosage: 150 MILLIGRAM, QD
     Route: 048
     Dates: start: 20200911
  189. METHYLCOBALAMIN [Concomitant]
     Active Substance: METHYLCOBALAMIN
     Dosage: 1500 MILLIGRAM, QD
     Route: 048
     Dates: start: 20200807, end: 20200820
  190. METHYLCOBALAMIN [Concomitant]
     Active Substance: METHYLCOBALAMIN
     Dosage: 1500 MILLIGRAM, QD
     Route: 048
     Dates: start: 20200822, end: 20200827
  191. METHYLCOBALAMIN [Concomitant]
     Active Substance: METHYLCOBALAMIN
     Dosage: 3000 MILLIGRAM, QD
     Route: 048
     Dates: start: 20200828, end: 20200828
  192. METHYLCOBALAMIN [Concomitant]
     Active Substance: METHYLCOBALAMIN
     Dosage: 1500 MILLIGRAM, QD
     Route: 048
     Dates: start: 20200829, end: 20200902
  193. METHYLCOBALAMIN [Concomitant]
     Active Substance: METHYLCOBALAMIN
     Dosage: 3000 MILLIGRAM, QD
     Route: 048
     Dates: start: 20200903, end: 20200903
  194. METHYLCOBALAMIN [Concomitant]
     Active Substance: METHYLCOBALAMIN
     Dosage: 1500 MILLIGRAM, QD
     Route: 048
     Dates: start: 20200904, end: 20200910
  195. METHYLCOBALAMIN [Concomitant]
     Active Substance: METHYLCOBALAMIN
     Dosage: 3000 MILLIGRAM, QD
     Route: 048
     Dates: start: 20200911
  196. METHOTREXATE [Concomitant]
     Active Substance: METHOTREXATE
     Route: 065
  197. VEDOLIZUMAB [Concomitant]
     Active Substance: VEDOLIZUMAB
     Route: 065
  198. GLUTAMINE\SODIUM GUALENATE [Concomitant]
     Active Substance: GLUTAMINE\SODIUM GUALENATE
     Dosage: 1.5 GRAM, QD
     Route: 048
     Dates: end: 20200312
  199. ALLOID G [Concomitant]
     Active Substance: SODIUM ALGINATE
     Dosage: 60 MILLILITER, QD
     Route: 048
     Dates: end: 20200312
  200. TALION [Concomitant]
     Dosage: 20 MILLIGRAM, QD
     Dates: end: 20200301
  201. TALION [Concomitant]
     Dosage: 20 MILLIGRAM, QD
     Route: 048
     Dates: start: 20200312, end: 20200313
  202. TALION [Concomitant]
     Dosage: 20 MILLIGRAM, QD
     Route: 048
     Dates: start: 20200403, end: 20200404
  203. TALION [Concomitant]
     Dosage: 20 MILLIGRAM, QD
     Route: 048
     Dates: start: 20200428, end: 20200429
  204. OMEPRAZOLE [Concomitant]
     Active Substance: OMEPRAZOLE
     Dosage: 20 MILLIGRAM, QD
     Route: 048
     Dates: end: 20200312
  205. FAMOTIDINE [Concomitant]
     Active Substance: FAMOTIDINE
     Indication: Prophylaxis
     Dosage: 40 MILLIGRAM, QD
     Route: 048
     Dates: end: 20200301
  206. FAMOTIDINE [Concomitant]
     Active Substance: FAMOTIDINE
     Dosage: 40 MILLIGRAM, QD
     Route: 048
     Dates: start: 20200312, end: 20200313
  207. FAMOTIDINE [Concomitant]
     Active Substance: FAMOTIDINE
     Dosage: 40 MILLIGRAM, QD
     Route: 048
     Dates: start: 20200403, end: 20200404
  208. FAMOTIDINE [Concomitant]
     Active Substance: FAMOTIDINE
     Dosage: 40 MILLIGRAM, QD
     Route: 048
     Dates: start: 20200414, end: 20200416
  209. FAMOTIDINE [Concomitant]
     Active Substance: FAMOTIDINE
     Dosage: 80 MILLIGRAM, QD
     Route: 048
     Dates: start: 20200417, end: 20200417
  210. FAMOTIDINE [Concomitant]
     Active Substance: FAMOTIDINE
     Dosage: 40 MILLIGRAM, QD
     Route: 048
     Dates: start: 20200418, end: 20200427
  211. FAMOTIDINE [Concomitant]
     Active Substance: FAMOTIDINE
     Dosage: 80 MILLIGRAM, QD
     Route: 048
     Dates: start: 20200428, end: 20200428
  212. FAMOTIDINE [Concomitant]
     Active Substance: FAMOTIDINE
     Dosage: 40 MILLIGRAM, QD
     Route: 048
     Dates: start: 20200429, end: 20200525
  213. FAMOTIDINE [Concomitant]
     Active Substance: FAMOTIDINE
     Dosage: 40 MILLIGRAM, QD
     Route: 048
     Dates: start: 20200528, end: 20200624
  214. FAMOTIDINE [Concomitant]
     Active Substance: FAMOTIDINE
     Dosage: 80 MILLIGRAM, QD
     Route: 048
     Dates: start: 20200625, end: 20200625
  215. FAMOTIDINE [Concomitant]
     Active Substance: FAMOTIDINE
     Dosage: 40 MILLIGRAM, QD
     Route: 048
     Dates: start: 20200626, end: 20200730
  216. AMLODIPINE [Concomitant]
     Active Substance: AMLODIPINE BESYLATE
     Dosage: 2.5 MILLIGRAM, QD
     Route: 048
     Dates: end: 20200311
  217. AMLODIPINE [Concomitant]
     Active Substance: AMLODIPINE BESYLATE
     Dosage: 5 MILLIGRAM, QD
     Route: 048
     Dates: start: 20200312, end: 20200312
  218. AMLODIPINE [Concomitant]
     Active Substance: AMLODIPINE BESYLATE
     Dosage: 2.5 MILLIGRAM, QD
     Route: 048
     Dates: start: 20200313, end: 20200402
  219. AMLODIPINE [Concomitant]
     Active Substance: AMLODIPINE BESYLATE
     Dosage: 2.5 MILLIGRAM, QD
     Route: 048
     Dates: start: 20200404, end: 20200511
  220. AMLODIPINE [Concomitant]
     Active Substance: AMLODIPINE BESYLATE
     Dosage: 7.5 MILLIGRAM, QD
     Route: 048
     Dates: start: 20200512, end: 20200527
  221. AMLODIPINE [Concomitant]
     Active Substance: AMLODIPINE BESYLATE
     Dosage: 12.5 MILLIGRAM, QD
     Route: 048
     Dates: start: 20200528, end: 20200529
  222. AMLODIPINE [Concomitant]
     Active Substance: AMLODIPINE BESYLATE
     Dosage: 10 MILLIGRAM, QD
     Route: 048
     Dates: start: 20200530, end: 20200601
  223. AMLODIPINE [Concomitant]
     Active Substance: AMLODIPINE BESYLATE
     Dosage: 5 MILLIGRAM, QD
     Route: 048
     Dates: start: 20200602, end: 20200625
  224. AMLODIPINE [Concomitant]
     Active Substance: AMLODIPINE BESYLATE
     Dosage: 5 MILLIGRAM, QD
     Route: 048
     Dates: start: 20200627, end: 20200730

REACTIONS (4)
  - Kounis syndrome [Recovered/Resolved]
  - Hepatitis B reactivation [Recovered/Resolved]
  - Therapeutic product effect incomplete [Unknown]
  - Anaphylactic reaction [Unknown]

NARRATIVE: CASE EVENT DATE: 20200403
